FAERS Safety Report 5124694-0 (Version None)
Quarter: 2006Q4

REPORT INFORMATION
  Report Type: 
  Country: None (occurrence: None)
  Receive Date: 20061011
  Receipt Date: 20060601
  Transmission Date: 20070319
  Serious: Yes (Hospitalization)
  Sender: FDA-Public Use
  Company Number: CA-AMGEN-US181561

PATIENT
  Sex: Female

DRUGS (13)
  1. ENBREL [Suspect]
     Indication: RHEUMATOID ARTHRITIS
     Route: 058
     Dates: start: 20060223, end: 20060503
  2. MULTIVITAMIN [Concomitant]
  3. VITAMIN D [Concomitant]
  4. CALCIUM GLUCONATE [Concomitant]
  5. EFFEXOR [Concomitant]
  6. FAMVIR [Concomitant]
  7. METOPROLOL TARTRATE [Concomitant]
  8. HYDROCHLOROTHIAZDE TAB [Concomitant]
  9. SYNTHROID [Concomitant]
  10. PLAVIX [Concomitant]
  11. SENOKOT [Concomitant]
  12. ACETAMINOPHEN AND CODEINE PHOSPHATE [Concomitant]
  13. BIAXIN [Concomitant]
     Route: 048
     Dates: start: 20060510, end: 20060517

REACTIONS (3)
  - DRUG INEFFECTIVE [None]
  - INFLAMMATION [None]
  - PLEURAL EFFUSION [None]
